FAERS Safety Report 15509415 (Version 1)
Quarter: 2018Q4

REPORT INFORMATION
  Report Type: Spontaneous
  Country: US (occurrence: US)
  Receive Date: 20181016
  Receipt Date: 20181016
  Transmission Date: 20190205
  Serious: Yes (Disabling, Other)
  Sender: FDA-Public Use
  Company Number: None

PATIENT
  Age: 61 Year
  Sex: Female
  Weight: 48.15 kg

DRUGS (6)
  1. VALSARTAN. [Suspect]
     Active Substance: VALSARTAN
     Indication: BLOOD PRESSURE MEASUREMENT
     Dosage: ?          QUANTITY:1 TABLET(S);?
     Route: 048
  2. PREMARIN 1.25MG [Concomitant]
  3. DEARBORN 80MG [Concomitant]
  4. BYSTOLIC [Concomitant]
     Active Substance: NEBIVOLOL HYDROCHLORIDE
  5. INDERAL LA [Concomitant]
     Active Substance: PROPRANOLOL HYDROCHLORIDE
  6. BUPROPION XL [Concomitant]
     Active Substance: BUPROPION

REACTIONS (3)
  - Vulvovaginal pruritus [None]
  - Recalled product administered [None]
  - Pancreatic carcinoma [None]

NARRATIVE: CASE EVENT DATE: 20121102
